FAERS Safety Report 4792663-6 (Version None)
Quarter: 2005Q4

REPORT INFORMATION
  Report Type: 
  Country: None (occurrence: None)
  Receive Date: 20051010
  Receipt Date: 20050316
  Transmission Date: 20060501
  Serious: Yes (Hospitalization, Other)
  Sender: FDA-Public Use
  Company Number: PHBS2005JP03769

PATIENT
  Age: 69 Year
  Sex: Female

DRUGS (5)
  1. BROMOCRIPTINE MESYLATE [Suspect]
     Indication: PARKINSON'S DISEASE
     Dosage: 10 MG/DAY
     Route: 065
  2. BROMOCRIPTINE MESYLATE [Suspect]
     Dosage: 7.5 MG/DAY
     Route: 065
     Dates: end: 20040101
  3. CABERGOLINE [Concomitant]
     Indication: PARKINSON'S DISEASE
     Dosage: 2 MG/DAY
     Route: 065
  4. CABERGOLINE [Concomitant]
     Dosage: 1MG/DAY
     Route: 065
     Dates: end: 20040101
  5. LEVODOPA W/BENSERAZIDE/ [Concomitant]
     Indication: PARKINSON'S DISEASE
     Dosage: 6 TABLETS
     Route: 048

REACTIONS (12)
  - AFFECT LABILITY [None]
  - AKINESIA [None]
  - APATHY [None]
  - COMMUNICATION DISORDER [None]
  - CONDITION AGGRAVATED [None]
  - DEHYDRATION [None]
  - HALLUCINATION, VISUAL [None]
  - MUSCLE ATROPHY [None]
  - MUSCLE RIGIDITY [None]
  - PERSECUTORY DELUSION [None]
  - PYREXIA [None]
  - URINARY TRACT INFECTION [None]
